FAERS Safety Report 10068702 (Version 1)
Quarter: 2014Q2

REPORT INFORMATION
  Report Type: Spontaneous
  Country: US (occurrence: US)
  Receive Date: 20140409
  Receipt Date: 20140409
  Transmission Date: 20141212
  Serious: No
  Sender: FDA-Public Use
  Company Number: US-MYLANLABS-2014S1004098

PATIENT
  Age: 64 Year
  Sex: Male
  Weight: 76.2 kg

DRUGS (1)
  1. METOPROLOL SUCCINATE EXTENDED-RELEASE TABLETS USP [Suspect]
     Indication: BLOOD PRESSURE INCREASED
     Route: 048
     Dates: start: 20131119, end: 20140202

REACTIONS (2)
  - Drug effect decreased [Recovered/Resolved]
  - Blood pressure increased [Recovered/Resolved]
